FAERS Safety Report 4288153-X (Version None)
Quarter: 2004Q1

REPORT INFORMATION
  Report Type: 
  Country: None (occurrence: None)
  Receive Date: 20040209
  Receipt Date: 20030826
  Transmission Date: 20041129
  Serious: No
  Sender: FDA-Public Use
  Company Number: US-GLAXOSMITHKLINE-A0423625A

PATIENT
  Age: 72 Year
  Sex: Female

DRUGS (2)
  1. PAXIL [Suspect]
     Dosage: 40MG PER DAY
     Route: 048
  2. BLOOD PRESSURE MEDICATION [Concomitant]

REACTIONS (2)
  - AMNESIA [None]
  - DISTURBANCE IN ATTENTION [None]
